FAERS Safety Report 13806011 (Version 2)
Quarter: 2017Q3

REPORT INFORMATION
  Report Type: Spontaneous
  Country: US (occurrence: US)
  Receive Date: 20170728
  Receipt Date: 20170915
  Transmission Date: 20171127
  Serious: No
  Sender: FDA-Public Use
  Company Number: US-GLAXOSMITHKLINE-US2017114850

PATIENT
  Age: 60 Year
  Sex: Male

DRUGS (4)
  1. LISINOPRIL. [Concomitant]
     Active Substance: LISINOPRIL
  2. BREO ELLIPTA [Suspect]
     Active Substance: FLUTICASONE FUROATE\VILANTEROL TRIFENATATE
     Indication: PULMONARY THROMBOSIS
     Dosage: 1 PUFF(S), 1D
     Dates: start: 201601
  3. ALPRAZOLAM. [Concomitant]
     Active Substance: ALPRAZOLAM
  4. XARELTO [Concomitant]
     Active Substance: RIVAROXABAN

REACTIONS (7)
  - Product use in unapproved indication [Unknown]
  - Arthralgia [Unknown]
  - Pain [Unknown]
  - Asthenia [Not Recovered/Not Resolved]
  - Dyspnoea [Recovering/Resolving]
  - Hypertension [Unknown]
  - Product quality issue [Unknown]

NARRATIVE: CASE EVENT DATE: 201601
